FAERS Safety Report 23320649 (Version 3)
Quarter: 2024Q4

REPORT INFORMATION
  Report Type: Report from Study
  Country: DE (occurrence: DE)
  Receive Date: 20231220
  Receipt Date: 20241011
  Transmission Date: 20250115
  Serious: Yes (Hospitalization, Other)
  Sender: INSMED
  Company Number: DE-INSMED, INC.-2022-00134-DE

PATIENT

DRUGS (10)
  1. ARIKAYCE [Suspect]
     Active Substance: AMIKACIN
     Indication: Atypical mycobacterial infection
     Dosage: 590 MILLIGRAM, QD
     Route: 055
     Dates: start: 20220111, end: 20220309
  2. ARIKAYCE [Suspect]
     Active Substance: AMIKACIN
     Indication: Cystic fibrosis
     Dosage: 590 MILLIGRAM, QD
     Route: 055
     Dates: start: 20220324, end: 20220522
  3. ARIKAYCE [Suspect]
     Active Substance: AMIKACIN
     Dosage: 590 MILLIGRAM, QD
     Route: 055
     Dates: start: 20220613, end: 20220718
  4. ARIKAYCE [Suspect]
     Active Substance: AMIKACIN
     Dosage: 590 MILLIGRAM, QD
     Route: 055
     Dates: start: 20221106, end: 20221110
  5. ARIKAYCE [Suspect]
     Active Substance: AMIKACIN
     Dosage: 590 MILLIGRAM, QD
     Route: 055
     Dates: start: 20230222, end: 202305
  6. ARIKAYCE [Suspect]
     Active Substance: AMIKACIN
     Dosage: 590 MILLIGRAM, QD
     Route: 055
     Dates: start: 20230913, end: 20231016
  7. ARIKAYCE [Suspect]
     Active Substance: AMIKACIN
     Dosage: 590 MILLIGRAM, QD
     Route: 055
     Dates: start: 20231027, end: 202404
  8. AMIKACIN [Concomitant]
     Active Substance: AMIKACIN
     Indication: Product used for unknown indication
     Dosage: UNK
     Route: 042
     Dates: start: 20221207
  9. MEROPENEM [Concomitant]
     Active Substance: MEROPENEM
     Indication: Product used for unknown indication
     Dosage: UNK
     Route: 042
     Dates: start: 20221013
  10. COLISTIN [Concomitant]
     Active Substance: COLISTIN
     Indication: Product used for unknown indication
     Dosage: UNK
     Route: 055

REACTIONS (27)
  - Oxygen saturation decreased [Unknown]
  - Respiratory tract infection [Recovered/Resolved]
  - Pseudomonas infection [Unknown]
  - Pneumonia [Recovered/Resolved]
  - Dyspnoea exertional [Unknown]
  - Migraine [Unknown]
  - Mental disorder [Unknown]
  - Laboratory test abnormal [Unknown]
  - Infection [Not Recovered/Not Resolved]
  - Secretion discharge [Recovering/Resolving]
  - Influenza [Recovered/Resolved]
  - Abdominal discomfort [Recovered/Resolved]
  - Sputum increased [Recovered/Resolved]
  - Headache [Recovered/Resolved]
  - Headache [Not Recovered/Not Resolved]
  - Aphonia [Recovered/Resolved]
  - Dizziness [Recovered/Resolved]
  - Nausea [Recovered/Resolved]
  - Vertigo [Recovered/Resolved]
  - Oropharyngeal pain [Recovered/Resolved]
  - Cough [Not Recovered/Not Resolved]
  - Haemoptysis [Recovered/Resolved]
  - Dyspnoea [Unknown]
  - Off label use [Unknown]
  - Product dose omission issue [Unknown]
  - Therapy interrupted [Unknown]
  - Drug ineffective [Unknown]

NARRATIVE: CASE EVENT DATE: 20220101
